FAERS Safety Report 6761950-4 (Version None)
Quarter: 2010Q2

REPORT INFORMATION
  Report Type: 
  Country: None (occurrence: None)
  Receive Date: 20100609
  Receipt Date: 20100603
  Transmission Date: 20101027
  Serious: Yes (Hospitalization)
  Sender: FDA-Public Use
  Company Number: FR-JNJFOC-20100601252

PATIENT
  Sex: Female

DRUGS (11)
  1. DURAGESIC-100 [Suspect]
     Indication: BACK PAIN
     Route: 062
  2. ACTISKENAN [Suspect]
     Indication: BACK PAIN
     Route: 048
  3. DEROXAT [Suspect]
     Indication: DEPRESSION
     Route: 048
  4. NEXIUM [Suspect]
     Indication: DRUG USE FOR UNKNOWN INDICATION
     Route: 048
  5. DIAMICRON [Suspect]
     Indication: TYPE 2 DIABETES MELLITUS
     Dosage: LONG LASTING TREATMENT
     Route: 048
  6. ALDACTONE [Suspect]
     Indication: HYPERTENSION
     Dosage: LONG LASTING TREATMENT
     Route: 048
  7. COVERSYL [Suspect]
     Indication: HYPERTENSION
     Dosage: LONG LASTING TREATMENT
     Route: 048
  8. ARICEPT [Suspect]
     Indication: DEMENTIA ALZHEIMER'S TYPE
     Route: 048
  9. FOSAMAX [Concomitant]
     Indication: OSTEOPOROSIS
     Dosage: LONG LASTING TREATMENT
     Route: 048
  10. BI-PROFENID [Concomitant]
     Indication: PAIN
     Route: 048
  11. DOLIPRANE [Concomitant]
     Indication: PAIN
     Dosage: LONG LASTING TREATMENT
     Route: 048

REACTIONS (4)
  - CONFUSIONAL STATE [None]
  - FALL [None]
  - HYPONATRAEMIA [None]
  - PELVIC FRACTURE [None]
